FAERS Safety Report 11116864 (Version 1)
Quarter: 2015Q2

REPORT INFORMATION
  Report Type: Spontaneous
  Country: US (occurrence: US)
  Receive Date: 20150515
  Receipt Date: 20150515
  Transmission Date: 20150821
  Serious: Yes (Hospitalization, Disabling, Other)
  Sender: FDA-Public Use
  Company Number: US-TARO-2015TAR00408

PATIENT
  Sex: Male
  Weight: 81.63 kg

DRUGS (4)
  1. PHENYTOIN SODIUM EXTENDED [Suspect]
     Active Substance: PHENYTOIN SODIUM
     Dosage: 500 MG
     Route: 048
  2. PHENYTOIN SODIUM EXTENDED [Suspect]
     Active Substance: PHENYTOIN SODIUM
     Dosage: 300 MG
     Route: 048
     Dates: end: 201504
  3. CLONAZEPAM. [Concomitant]
     Active Substance: CLONAZEPAM
     Dosage: UNK
  4. PHENYTOIN SODIUM EXTENDED [Suspect]
     Active Substance: PHENYTOIN SODIUM
     Indication: SEIZURE
     Dosage: 300 MG
     Route: 048
     Dates: start: 2005

REACTIONS (13)
  - Anticonvulsant drug level decreased [Unknown]
  - Seizure [Recovering/Resolving]
  - Tendonitis [Not Recovered/Not Resolved]
  - Head injury [Unknown]
  - Tooth fracture [Unknown]
  - Bone erosion [Not Recovered/Not Resolved]
  - Renal pain [Recovered/Resolved]
  - Cartilage injury [Not Recovered/Not Resolved]
  - Tooth loss [Unknown]
  - Treatment noncompliance [Not Recovered/Not Resolved]
  - Rotator cuff syndrome [Unknown]
  - Fall [Unknown]
  - Drug ineffective [Recovering/Resolving]

NARRATIVE: CASE EVENT DATE: 2007
